FAERS Safety Report 10048672 (Version 1)
Quarter: 2014Q1

REPORT INFORMATION
  Report Type: Spontaneous
  Country: US (occurrence: US)
  Receive Date: 20140331
  Receipt Date: 20140331
  Transmission Date: 20141002
  Serious: Yes (Other)
  Sender: FDA-Public Use
  Company Number: US-MYLANLABS-2014S1004047

PATIENT
  Age: 61 Year
  Sex: Female
  Weight: 65.77 kg

DRUGS (3)
  1. EPIPEN 2-PAK [Suspect]
     Indication: ARTHROPOD STING
     Route: 030
     Dates: start: 201308
  2. EPIPEN 2-PAK [Suspect]
     Indication: ANAPHYLACTIC REACTION
     Route: 030
     Dates: start: 201308
  3. EPIPEN 2-PAK [Suspect]
     Indication: HYPERSENSITIVITY
     Route: 030
     Dates: start: 201308

REACTIONS (3)
  - Wrong technique in drug usage process [Recovered/Resolved]
  - Incorrect dose administered [Recovered/Resolved]
  - Stress [Recovered/Resolved]
